FAERS Safety Report 20521486 (Version 2)
Quarter: 2022Q1

REPORT INFORMATION
  Report Type: Spontaneous
  Country: US (occurrence: US)
  Receive Date: 20220226
  Receipt Date: 20220313
  Transmission Date: 20220423
  Serious: Yes (Other)
  Sender: FDA-Public Use
  Company Number: US-AMNEAL PHARMACEUTICALS-2022-AMRX-00361

PATIENT
  Age: 46 Year
  Sex: Female
  Weight: 99.773 kg

DRUGS (1)
  1. ADRENACLICK [Suspect]
     Active Substance: EPINEPHRINE
     Indication: Hypersensitivity
     Dosage: AS NEEDED FOR EMERGENCY USE
     Route: 058

REACTIONS (1)
  - Device failure [Unknown]

NARRATIVE: CASE EVENT DATE: 20220212
